FAERS Safety Report 5132338-7 (Version None)
Quarter: 2006Q4

REPORT INFORMATION
  Report Type: 
  Country: None (occurrence: None)
  Receive Date: 20061023
  Receipt Date: 20060724
  Transmission Date: 20070319
  Serious: Yes (Other)
  Sender: FDA-Public Use
  Company Number: PHEH2006US09492

PATIENT
  Age: 58 Year
  Sex: Female
  Weight: 92.063 kg

DRUGS (1)
  1. DIOVAN HCT [Suspect]
     Indication: HYPERTENSION
     Dosage: 80MG VAL/12.5 MG HCT, QD
     Route: 048
     Dates: start: 20050419, end: 20060717

REACTIONS (6)
  - ALOPECIA [None]
  - DEEP VEIN THROMBOSIS [None]
  - DYSPEPSIA [None]
  - HEART RATE INCREASED [None]
  - MUSCLE SPASMS [None]
  - POST THROMBOTIC SYNDROME [None]
